FAERS Safety Report 5896044-3 (Version None)
Quarter: 2008Q3

REPORT INFORMATION
  Report Type: 
  Country: None (occurrence: None)
  Receive Date: 20080924
  Receipt Date: 20080916
  Transmission Date: 20090109
  Serious: Yes (Other)
  Sender: FDA-Public Use
  Company Number: FR-GILEAD-2008-0018201

PATIENT
  Sex: Male
  Weight: 60 kg

DRUGS (5)
  1. TRUVADA [Suspect]
     Indication: HIV INFECTION
     Route: 048
     Dates: start: 20070901, end: 20080913
  2. TRUVADA [Suspect]
     Indication: HEPATITIS B VIRUS TEST
  3. HEPSERA [Suspect]
     Indication: HEPATITIS B VIRUS TEST
     Route: 048
     Dates: start: 20060101
  4. CRIXIVAN [Concomitant]
     Route: 048
     Dates: start: 20040101
  5. VIRAMUNE [Concomitant]
     Indication: HIV INFECTION
     Route: 048
     Dates: start: 20040101

REACTIONS (2)
  - RENAL FAILURE [None]
  - RENAL TUBULAR DISORDER [None]
